FAERS Safety Report 9108850 (Version 3)
Quarter: 2013Q2

REPORT INFORMATION
  Report Type: Spontaneous
  Country: JP (occurrence: JP)
  Receive Date: 20130222
  Receipt Date: 20130402
  Transmission Date: 20140414
  Serious: Yes (Other)
  Sender: FDA-Public Use
  Company Number: PHHY2013JP017322

PATIENT
  Sex: 0

DRUGS (4)
  1. APRESOLINE [Suspect]
     Dosage: MATERNAL DOSE OF 30 MG, DAILY
     Route: 064
  2. METHYLDOPA [Suspect]
     Dosage: MATERNAL DOSE OF 2250 MG, DAILY
     Route: 064
  3. METHYLDOPA [Suspect]
     Dosage: MATERNAL DOSE OF 750 MG, DAILY
     Route: 064
  4. NIFEDIPINE [Concomitant]
     Indication: HYPERTENSION
     Dosage: MATERNAL DOSE 40 MG DAILY
     Route: 064

REACTIONS (3)
  - Premature baby [Unknown]
  - Low birth weight baby [Unknown]
  - Foetal exposure during pregnancy [Unknown]
